FAERS Safety Report 11977554 (Version 9)
Quarter: 2017Q1

REPORT INFORMATION
  Report Type: Report from Study
  Country: US (occurrence: US)
  Receive Date: 20160129
  Receipt Date: 20170320
  Transmission Date: 20170428
  Serious: Yes (Hospitalization)
  Sender: FDA-Public Use
  Company Number: US-ACTELION-A-NJ2016-130521

PATIENT
  Age: 60 Year
  Sex: Male
  Weight: 63.49 kg

DRUGS (5)
  1. OPSUMIT [Suspect]
     Active Substance: MACITENTAN
     Indication: PULMONARY HYPERTENSION
     Dosage: 10 MG, QD
     Route: 048
     Dates: start: 20160415
  2. TYVASO [Concomitant]
     Active Substance: TREPROSTINIL
  3. VELETRI [Suspect]
     Active Substance: EPOPROSTENOL
     Dosage: 24 NG/KG, PER MIN
     Route: 042
  4. VELETRI [Suspect]
     Active Substance: EPOPROSTENOL
     Indication: PULMONARY HYPERTENSION
     Dosage: 15 NG/KG, PER MIN
     Route: 042
     Dates: start: 20151005
  5. SILDENAFIL. [Concomitant]
     Active Substance: SILDENAFIL

REACTIONS (18)
  - Activities of daily living impaired [Unknown]
  - Erythema [Unknown]
  - Dysentery [Not Recovered/Not Resolved]
  - Weight decreased [Unknown]
  - Diarrhoea [Unknown]
  - Dizziness [Unknown]
  - Flushing [Unknown]
  - Dry skin [Unknown]
  - Headache [Unknown]
  - Catheter placement [Unknown]
  - Therapy non-responder [Unknown]
  - Acute abdomen [Unknown]
  - Abdominal distension [Unknown]
  - Oedema [Unknown]
  - Dysuria [Unknown]
  - Chest discomfort [Unknown]
  - Burning sensation [Unknown]
  - Dyspnoea [Unknown]
